FAERS Safety Report 6841726-X (Version None)
Quarter: 2010Q3

REPORT INFORMATION
  Report Type: 
  Country: None (occurrence: None)
  Receive Date: 20100709
  Receipt Date: 20100702
  Transmission Date: 20110219
  Serious: Yes (Other)
  Sender: FDA-Public Use
  Company Number: LTI2010A00108

PATIENT
  Age: 80 Year
  Sex: Female

DRUGS (6)
  1. ACTOS [Suspect]
     Indication: TYPE 2 DIABETES MELLITUS
     Dosage: 30 MG (30 MG, 1 IN 1 D) ORAL
     Route: 048
     Dates: start: 20100101, end: 20100201
  2. STAGID (METFORMIN EMBONATE) [Concomitant]
  3. GLYBURIDE [Concomitant]
  4. LERCAN (LERCANIDIPINE) [Concomitant]
  5. HYTACAND (HYDROCHLOROTHIAZIDE, CANDESARTAN CILEXETIL) [Concomitant]
  6. ZOCOR [Concomitant]

REACTIONS (2)
  - SCINTILLATING SCOTOMA [None]
  - VISUAL IMPAIRMENT [None]
